FAERS Safety Report 7630497-5 (Version None)
Quarter: 2011Q3

REPORT INFORMATION
  Report Type: 
  Country: None (occurrence: None)
  Receive Date: 20110722
  Receipt Date: 20110719
  Transmission Date: 20111222
  Serious: Yes (Hospitalization)
  Sender: FDA-Public Use
  Company Number: FR-PFIZER INC-2011162826

PATIENT
  Age: 52 Year
  Sex: Male

DRUGS (1)
  1. EFFEXOR XR [Suspect]
     Indication: DEPRESSION SUICIDAL
     Dosage: 75 MG, 2X/DAY
     Route: 048
     Dates: start: 20101215, end: 20110114

REACTIONS (1)
  - HEPATITIS CHOLESTATIC [None]
